FAERS Safety Report 22282500 (Version 15)
Quarter: 2024Q1

REPORT INFORMATION
  Report Type: Report from Study
  Country: CO (occurrence: CO)
  Receive Date: 20230504
  Receipt Date: 20240214
  Transmission Date: 20240409
  Serious: Yes (Death, Hospitalization, Other)
  Sender: FDA-Public Use
  Company Number: CO-SA-SAC20230503000309

PATIENT
  Age: 19 Year
  Sex: Male
  Weight: 68 kg

DRUGS (1)
  1. ALEMTUZUMAB [Suspect]
     Active Substance: ALEMTUZUMAB
     Indication: Multiple sclerosis
     Dosage: 12 MG, QD
     Route: 042
     Dates: start: 20221010, end: 20221014

REACTIONS (21)
  - Autoimmune haemolytic anaemia [Fatal]
  - Evans syndrome [Fatal]
  - Haemolytic anaemia [Fatal]
  - Immune system disorder [Fatal]
  - Central nervous system haemorrhage [Unknown]
  - Autoimmune haemolytic anaemia [Not Recovered/Not Resolved]
  - Haemoglobin decreased [Not Recovered/Not Resolved]
  - Thrombocytopenia [Recovered/Resolved]
  - Platelet count decreased [Recovered/Resolved]
  - Sepsis [Recovered/Resolved]
  - Pyrexia [Recovered/Resolved]
  - Abdominal neoplasm [Unknown]
  - Ascites [Unknown]
  - General physical health deterioration [Not Recovered/Not Resolved]
  - Hypertension [Recovered/Resolved]
  - Red blood cell count decreased [Unknown]
  - Viral infection [Recovered/Resolved]
  - Fatigue [Unknown]
  - Spleen disorder [Not Recovered/Not Resolved]
  - Renal disorder [Not Recovered/Not Resolved]
  - Pain [Unknown]

NARRATIVE: CASE EVENT DATE: 20230401
